FAERS Safety Report 8486061-1 (Version None)
Quarter: 2012Q3

REPORT INFORMATION
  Report Type: 
  Country: None (occurrence: None)
  Receive Date: 20120703
  Receipt Date: 20120618
  Transmission Date: 20120928
  Serious: Yes (Other)
  Sender: FDA-Public Use
  Company Number: GB-WATSON-2012-11195

PATIENT
  Age: 16 Year
  Sex: Male

DRUGS (1)
  1. FLUOXETINE HCL [Suspect]
     Indication: MAJOR DEPRESSION
     Dosage: 20 MG, DAILY
     Route: 065

REACTIONS (6)
  - DISSOCIATION [None]
  - EMOTIONAL DISTRESS [None]
  - THINKING ABNORMAL [None]
  - HOMICIDE [None]
  - AGGRESSION [None]
  - BLUNTED AFFECT [None]
